FAERS Safety Report 24022147 (Version 3)
Quarter: 2024Q2

REPORT INFORMATION
  Report Type: Spontaneous
  Country: IN (occurrence: IN)
  Receive Date: 20240627
  Receipt Date: 20240627
  Transmission Date: 20240716
  Serious: No
  Sender: FDA-Public Use
  Company Number: IN-ROCHE-3513422

PATIENT
  Age: 70 Year
  Sex: Male

DRUGS (4)
  1. VABYSMO [Suspect]
     Active Substance: FARICIMAB\FARICIMAB-SVOA
     Indication: Retinal vein occlusion
     Dosage: SECOND INFUSION DATE: 25/MAR/2024
     Route: 050
     Dates: start: 20240215
  2. AVASTIN [Concomitant]
     Active Substance: BEVACIZUMAB
     Dosage: IN RIGHT EYE
     Dates: start: 20231115
  3. EYLEA [Concomitant]
     Active Substance: AFLIBERCEPT
     Dosage: OD
     Dates: start: 20231220
  4. COMBIGAN [Concomitant]
     Active Substance: BRIMONIDINE TARTRATE\TIMOLOL MALEATE
     Route: 047

REACTIONS (2)
  - Off label use [Unknown]
  - No adverse event [Unknown]

NARRATIVE: CASE EVENT DATE: 20240215
